FAERS Safety Report 25895003 (Version 1)
Quarter: 2025Q4

REPORT INFORMATION
  Report Type: Spontaneous
  Country: US (occurrence: None)
  Receive Date: 20251007
  Receipt Date: 20251007
  Transmission Date: 20260118
  Serious: Yes (Hospitalization)
  Sender: FDA-CTU
  Company Number: None

PATIENT
  Age: 52 Year
  Sex: Male

DRUGS (11)
  1. FABRAZYME [Suspect]
     Active Substance: AGALSIDASE BETA
     Indication: Fabry^s disease
     Dosage: RECONSTITUTE EACH 35MG VIAL WITH 7.2ML SWFI; 2 VIAL(S) NEEDED PER DOSE. WITHDRAW 70MG (14ML)  AND ADD TO NSS 236ML TO KEEP TOTAL VOLUME AT 250 ML. INFUSE 70 MG INTRAVENOUSLY EVERY 2 WEEKS OVER ?1.5HQURS VIA CURLIN PUMP.
     Route: 042
     Dates: start: 20250520
  2. ACETAMINOPHEN [Concomitant]
     Active Substance: ACETAMINOPHEN
  3. BO POSIFLUSH [Concomitant]
  4. DIPHENHYDRAMINE HYDROCHLORIDE [Concomitant]
     Active Substance: DIPHENHYDRAMINE HYDROCHLORIDE
  5. DIPHENHYDRAMINE HYDROCHLO [Concomitant]
  6. EPINEPHRINE [Concomitant]
     Active Substance: EPINEPHRINE
  7. MONOJECT PHARMA GRADE FLU [Concomitant]
  8. SODIUM CHLORIDE [Concomitant]
     Active Substance: SODIUM CHLORIDE
  9. NORMAL SALINE 1.V. FLUSH [Concomitant]
  10. PAIN + FEVER [Concomitant]
  11. SODIUM CHLORIDE [Concomitant]
     Active Substance: SODIUM CHLORIDE

REACTIONS (2)
  - Renal transplant [None]
  - Therapy interrupted [None]

NARRATIVE: CASE EVENT DATE: 20250923
